FAERS Safety Report 11743573 (Version 4)
Quarter: 2016Q1

REPORT INFORMATION
  Report Type: Spontaneous
  Country: DE (occurrence: DE)
  Receive Date: 20151116
  Receipt Date: 20160119
  Transmission Date: 20160525
  Serious: Yes (Disabling)
  Sender: FDA-Public Use
  Company Number: DE-GLAXOSMITHKLINE-DE2015GSK147680

PATIENT
  Sex: Male
  Weight: 90 kg

DRUGS (2)
  1. ALLERGOSPASMIN [Concomitant]
     Indication: ASTHMA
     Dosage: UNK
  2. RELVAR ELLIPTA [Suspect]
     Active Substance: FLUTICASONE FUROATE\VILANTEROL TRIFENATATE
     Indication: ASTHMA
     Dosage: UNK
     Dates: start: 201506, end: 201510

REACTIONS (11)
  - Oropharyngeal discomfort [Recovered/Resolved]
  - Nausea [Unknown]
  - Pharyngeal inflammation [Unknown]
  - Dysphagia [Recovered/Resolved]
  - Aphonia [Recovered/Resolved]
  - Dysphonia [Recovered/Resolved]
  - Dizziness [Unknown]
  - Oral pain [Recovered/Resolved]
  - Malaise [Unknown]
  - Laryngeal pain [Recovered/Resolved]
  - Throat irritation [Unknown]

NARRATIVE: CASE EVENT DATE: 2015
